FAERS Safety Report 13034299 (Version 1)
Quarter: 2016Q4

REPORT INFORMATION
  Report Type: Spontaneous
  Country: US (occurrence: US)
  Receive Date: 20161216
  Receipt Date: 20161216
  Transmission Date: 20170207
  Serious: No
  Sender: FDA-Public Use
  Company Number: US-JNJFOC-20161126266

PATIENT
  Sex: Male
  Weight: 90.72 kg

DRUGS (4)
  1. MENS ROGAINE EXTRA STRENGTH [Suspect]
     Active Substance: MINOXIDIL
     Route: 061
  2. NIZORAL A-D [Concomitant]
     Active Substance: KETOCONAZOLE
     Indication: DANDRUFF
     Route: 065
  3. MULTIVITAMINS [Concomitant]
     Active Substance: VITAMINS
     Indication: ROUTINE HEALTH MAINTENANCE
     Dosage: 5 YEARS
     Route: 065
  4. MENS ROGAINE EXTRA STRENGTH [Suspect]
     Active Substance: MINOXIDIL
     Indication: ALOPECIA
     Dosage: NICKEL SIZE
     Route: 061
     Dates: end: 201608

REACTIONS (3)
  - Dry skin [Recovered/Resolved]
  - Wrong technique in product usage process [Recovered/Resolved]
  - Scab [Recovered/Resolved]
